FAERS Safety Report 23035627 (Version 3)
Quarter: 2023Q4

REPORT INFORMATION
  Report Type: Report from Study
  Country: US (occurrence: US)
  Receive Date: 20231006
  Receipt Date: 20231219
  Transmission Date: 20240110
  Serious: Yes (Hospitalization)
  Sender: FDA-Public Use
  Company Number: US-ALXN-A202311275

PATIENT
  Sex: Male

DRUGS (2)
  1. SOLIRIS [Suspect]
     Active Substance: ECULIZUMAB
     Indication: Atypical haemolytic uraemic syndrome
     Dosage: UNK
     Route: 065
     Dates: start: 20230831, end: 20230920
  2. BENADRYL [Concomitant]
     Active Substance: DIPHENHYDRAMINE HYDROCHLORIDE
     Indication: Premedication
     Dosage: UNK
     Route: 065

REACTIONS (10)
  - Fluid retention [Unknown]
  - Blood pressure decreased [Unknown]
  - Blood creatinine increased [Unknown]
  - Hypoacusis [Unknown]
  - Pruritus [Unknown]
  - Vision blurred [Unknown]
  - Erythema [Unknown]
  - Abdominal pain [Unknown]
  - Chest pain [Unknown]
  - Back pain [Unknown]
